FAERS Safety Report 22223200 (Version 1)
Quarter: 2023Q2

REPORT INFORMATION
  Report Type: Spontaneous
  Country: DE (occurrence: DE)
  Receive Date: 20230418
  Receipt Date: 20230418
  Transmission Date: 20230722
  Serious: Yes (Other)
  Sender: FDA-Public Use
  Company Number: DE-ROCHE-3317297

PATIENT
  Sex: Female
  Weight: 43 kg

DRUGS (2)
  1. CAPECITABINE [Suspect]
     Active Substance: CAPECITABINE
     Indication: Colon cancer
     Dosage: DAILY DOSE: 3500 MILLIGRAM
     Route: 048
     Dates: start: 20221128, end: 20221211
  2. CAPECITABINE [Suspect]
     Active Substance: CAPECITABINE
     Indication: Colon cancer
     Dosage: DAILY DOSE: 3500 MILLIGRAM
     Route: 048
     Dates: start: 20221212, end: 20230101

REACTIONS (6)
  - Ileus [Recovering/Resolving]
  - Hypokalaemia [Recovering/Resolving]
  - Diarrhoea [Recovering/Resolving]
  - Dehydration [Recovering/Resolving]
  - Enteritis [Recovering/Resolving]
  - Electrolyte depletion [Recovering/Resolving]
